FAERS Safety Report 7437592-4 (Version None)
Quarter: 2011Q2

REPORT INFORMATION
  Report Type: 
  Country: None (occurrence: None)
  Receive Date: 20110426
  Receipt Date: 20110419
  Transmission Date: 20111010
  Serious: Yes (Other)
  Sender: FDA-Public Use
  Company Number: US-ALEXION-A201100526

PATIENT
  Sex: Male

DRUGS (8)
  1. PLAVIX [Concomitant]
     Indication: CORONARY ARTERY DISEASE
     Dosage: QD
  2. ASPIRIN [Concomitant]
     Indication: CORONARY ARTERY DISEASE
     Dosage: QD
     Route: 048
  3. WARFARIN [Concomitant]
     Indication: DEEP VEIN THROMBOSIS
     Dosage: 5 MG, QD
     Route: 048
     Dates: start: 20091001, end: 20091205
  4. WARFARIN [Concomitant]
     Dosage: 10 MG, 2 DAYS/WEEK
     Route: 048
     Dates: start: 20091205
  5. LISINOPRIL [Concomitant]
     Dosage: 5 MG, QD
     Route: 048
  6. SOLIRIS [Suspect]
     Indication: PAROXYSMAL NOCTURNAL HAEMOGLOBINURIA
     Dosage: 900 MG, Q2W
     Route: 042
     Dates: start: 20110214
  7. WARFARIN [Concomitant]
     Dosage: 7.5 MG 5 DAYS/WEEK
     Route: 048
     Dates: start: 20091205
  8. LOVENOX [Concomitant]
     Indication: DEEP VEIN THROMBOSIS
     Dosage: UNK

REACTIONS (1)
  - DEEP VEIN THROMBOSIS [None]
